FAERS Safety Report 14586423 (Version 1)
Quarter: 2018Q1

REPORT INFORMATION
  Report Type: Spontaneous
  Country: US (occurrence: US)
  Receive Date: 20180228
  Receipt Date: 20180228
  Transmission Date: 20180509
  Serious: Yes (Death)
  Sender: FDA-Public Use
  Company Number: None

PATIENT
  Age: 66 Year
  Sex: Female

DRUGS (13)
  1. DULOXETINE. [Concomitant]
     Active Substance: DULOXETINE
  2. FISH OIL [Concomitant]
     Active Substance: FISH OIL
  3. MULTI-VIT [Concomitant]
     Active Substance: VITAMINS
  4. OXYCONTIN [Concomitant]
     Active Substance: OXYCODONE HYDROCHLORIDE
  5. TRAZODONE [Concomitant]
     Active Substance: TRAZODONE HYDROCHLORIDE
  6. MIRAPEX [Concomitant]
     Active Substance: PRAMIPEXOLE DIHYDROCHLORIDE
  7. TAMOXIFEN [Concomitant]
     Active Substance: TAMOXIFEN
  8. PROBIOTIC [Concomitant]
     Active Substance: PROBIOTICS NOS
  9. HUMIRA [Suspect]
     Active Substance: ADALIMUMAB
     Indication: CROHN^S DISEASE
     Route: 058
     Dates: start: 201801, end: 20180227
  10. ASPIRIN. [Concomitant]
     Active Substance: ASPIRIN
  11. GABAPENTIN. [Concomitant]
     Active Substance: GABAPENTIN
  12. VITAMIN D [Concomitant]
     Active Substance: CHOLECALCIFEROL
  13. FOLIC ACID. [Concomitant]
     Active Substance: FOLIC ACID

REACTIONS (1)
  - Myocardial infarction [None]

NARRATIVE: CASE EVENT DATE: 20180227
